FAERS Safety Report 6045542-0 (Version None)
Quarter: 2009Q1

REPORT INFORMATION
  Report Type: 
  Country: None (occurrence: None)
  Receive Date: 20090121
  Receipt Date: 20090116
  Transmission Date: 20090719
  Serious: Yes (Hospitalization)
  Sender: FDA-Public Use
  Company Number: B0554558A

PATIENT
  Age: 27 Year
  Sex: Female

DRUGS (2)
  1. SALBUMOL [Suspect]
     Dosage: 2MG FOUR TIMES PER DAY
     Route: 048
     Dates: start: 20080101, end: 20080220
  2. LOXEN [Suspect]
     Dosage: 50MG UNKNOWN
     Route: 048
     Dates: start: 20080101, end: 20080101

REACTIONS (4)
  - ARTERITIS [None]
  - RETINAL ISCHAEMIA [None]
  - RETINOPATHY [None]
  - VITREOUS HAEMORRHAGE [None]
